FAERS Safety Report 4997089-8 (Version None)
Quarter: 2006Q2

REPORT INFORMATION
  Report Type: 
  Country: None (occurrence: None)
  Receive Date: 20060505
  Receipt Date: 20060421
  Transmission Date: 20061013
  Serious: Yes (Death)
  Sender: FDA-Public Use
  Company Number: HQWYE936024APR06

PATIENT
  Age: 41 Year
  Sex: Male

DRUGS (2)
  1. EFFEXOR XR [Suspect]
     Indication: BIPOLAR DISORDER
     Dosage: 225 MG 1X PER 1 DAY, ORAL
     Route: 048
  2. XANAX [Concomitant]

REACTIONS (5)
  - ANTIDEPRESSANT DRUG LEVEL INCREASED [None]
  - FEELING HOT [None]
  - HYPERHIDROSIS [None]
  - POLYDIPSIA [None]
  - TREATMENT NONCOMPLIANCE [None]
